FAERS Safety Report 8415017-X (Version None)
Quarter: 2012Q2

REPORT INFORMATION
  Report Type: 
  Country: None (occurrence: None)
  Receive Date: 20120606
  Receipt Date: 20120525
  Transmission Date: 20120825
  Serious: Yes (Hospitalization, Other)
  Sender: FDA-Public Use
  Company Number: LT-ELI_LILLY_AND_COMPANY-LT201205009721

PATIENT
  Sex: Male

DRUGS (3)
  1. OLANZAPINE [Suspect]
     Dosage: 405 MG, UNK
     Route: 030
     Dates: start: 20120525, end: 20120525
  2. DIAZEPAM [Concomitant]
     Dosage: 5 MG, QD
     Route: 048
  3. OLANZAPINE [Suspect]
     Indication: SCHIZOPHRENIA
     Dosage: 405 MG, UNK
     Route: 030
     Dates: start: 20120425

REACTIONS (1)
  - COMA [None]
